FAERS Safety Report 8266955-2 (Version None)
Quarter: 2012Q2

REPORT INFORMATION
  Report Type: 
  Country: None (occurrence: None)
  Receive Date: 20120404
  Receipt Date: 20120404
  Transmission Date: 20120825
  Serious: Yes (Other)
  Sender: FDA-Public Use
  Company Number: None

PATIENT
  Sex: Male
  Weight: 81.6475 kg

DRUGS (1)
  1. ACTAVIS 100MCG/H FENTANYL TRANSDERMAL SYSTEM [Suspect]
     Indication: PAIN
     Dosage: 100 MCG/H EVERY 72 HRS TRANSDERMAL
     Route: 062
     Dates: start: 20120225

REACTIONS (1)
  - DRUG EFFECT DECREASED [None]
